FAERS Safety Report 9124194 (Version 1)
Quarter: 2013Q1

REPORT INFORMATION
  Report Type: Spontaneous
  Country: US (occurrence: US)
  Receive Date: 20130116
  Receipt Date: 20130116
  Transmission Date: 20140127
  Serious: Yes (Hospitalization)
  Sender: FDA-Public Use
  Company Number: US-009507513-1301XAA004080

PATIENT
  Age: 74 Year
  Sex: Female

DRUGS (12)
  1. SINGULAIR [Suspect]
     Dosage: 10 MG, UNK
     Route: 048
  2. ZOPICLONE [Suspect]
     Indication: ASTHMA
     Dosage: 1 U, QD
     Route: 048
  3. CALCIUM CARBONATE [Suspect]
     Route: 048
  4. ACETAMINOPHEN [Suspect]
     Dosage: 1000 MG, UNK
     Route: 048
  5. ACETAMINOPHEN [Suspect]
     Dosage: 6, TAB, QD
     Route: 048
  6. ALENDRONATE SODIUM / CHOLECALCIFEROL [Suspect]
     Dosage: 1, TAB, WEEKLY
     Route: 048
  7. DESLORATADINE [Suspect]
     Dosage: 5 MG, QD
     Route: 048
  8. RHINOCORT [Suspect]
     Dosage: 2 SPR, QD
     Route: 045
  9. GINKOR FORT [Suspect]
     Dosage: 1, U, BID
     Route: 048
  10. ALDALIX [Suspect]
     Dosage: 1, CAP, QD
     Route: 048
  11. MOVIPREP [Suspect]
     Dosage: 3 SAC, QD
     Route: 048
  12. FLUTICASONE PROPIONATE (+) SALMETEROL XINAFOATE [Suspect]
     Dosage: 4, PUFF, QD, INHALATION
     Route: 055

REACTIONS (1)
  - Confusional state [Unknown]
